FAERS Safety Report 15347692 (Version 1)
Quarter: 2018Q3

REPORT INFORMATION
  Report Type: Spontaneous
  Country: US (occurrence: US)
  Receive Date: 20180829
  Receipt Date: 20180829
  Transmission Date: 20181010
  Serious: No
  Sender: FDA-Public Use
  Company Number: None

PATIENT

DRUGS (1)
  1. WARFARIN [Suspect]
     Active Substance: WARFARIN

REACTIONS (6)
  - Pain in extremity [None]
  - Blood glucose increased [None]
  - Refusal of treatment by patient [None]
  - Arteriosclerosis [None]
  - Pyoderma [None]
  - Fall [None]
